FAERS Safety Report 7170022-9 (Version None)
Quarter: 2010Q4

REPORT INFORMATION
  Report Type: 
  Country: None (occurrence: None)
  Receive Date: 20101217
  Receipt Date: 20101208
  Transmission Date: 20110411
  Serious: Yes (Hospitalization)
  Sender: FDA-Public Use
  Company Number: DE-ASTRAZENECA-2010SE54562

PATIENT
  Age: 27714 Day
  Sex: Male

DRUGS (16)
  1. IRESSA [Suspect]
     Indication: NON-SMALL CELL LUNG CANCER
     Route: 048
     Dates: start: 20101022, end: 20101112
  2. TILIDIN [Suspect]
     Indication: PAIN
     Dosage: AS REQUIRED
     Route: 048
  3. CLEXANE [Concomitant]
     Indication: ATRIAL FIBRILLATION
     Route: 058
     Dates: start: 20101101
  4. CLEXANE [Concomitant]
     Indication: PROPHYLAXIS
     Route: 058
     Dates: start: 20101101
  5. VERAPAMIL [Concomitant]
     Indication: ATRIAL FIBRILLATION
     Route: 048
  6. NOVAMIN [Concomitant]
     Indication: PAIN PROPHYLAXIS
     Route: 048
     Dates: start: 20101105
  7. PANTOZOL [Concomitant]
     Indication: PROPHYLAXIS
     Route: 048
  8. TORASEMID [Concomitant]
     Indication: HYPERTENSION
     Route: 048
  9. RAMIPRIL [Concomitant]
     Indication: HYPERTENSION
     Route: 048
  10. INUVAIR [Concomitant]
     Indication: CHRONIC OBSTRUCTIVE PULMONARY DISEASE
     Dosage: 100/5 UG BID, TOTAL DAILY DOSE: 200/10 UG
     Route: 055
  11. INUVAIR [Concomitant]
     Indication: EMPHYSEMA
     Dosage: 100/5 UG BID, TOTAL DAILY DOSE: 200/10 UG
     Route: 055
  12. SPIRIVA [Concomitant]
     Indication: CHRONIC OBSTRUCTIVE PULMONARY DISEASE
     Route: 055
  13. SPIRIVA [Concomitant]
     Indication: EMPHYSEMA
     Route: 055
  14. TOREM [Concomitant]
     Route: 048
     Dates: start: 20101101
  15. MOVICOL [Concomitant]
     Indication: PROPHYLAXIS
     Dosage: TWO TIMES A DAY
     Route: 048
     Dates: start: 20101101
  16. OXAZEPAM [Concomitant]
     Indication: INSOMNIA
     Route: 048
     Dates: start: 20101101

REACTIONS (3)
  - ABDOMINAL PAIN [None]
  - CONSTIPATION [None]
  - SUBILEUS [None]
